FAERS Safety Report 7389086-2 (Version None)
Quarter: 2011Q2

REPORT INFORMATION
  Report Type: 
  Country: None (occurrence: None)
  Receive Date: 20110401
  Receipt Date: 20110322
  Transmission Date: 20111010
  Serious: Yes (Other)
  Sender: FDA-Public Use
  Company Number: US-ROCHE-758754

PATIENT
  Sex: Male

DRUGS (10)
  1. ASPIRIN [Concomitant]
  2. XANAX [Concomitant]
  3. VIREAD [Concomitant]
  4. OXYCODONE [Concomitant]
  5. ACCUPRIL [Concomitant]
  6. REYATAZ [Concomitant]
  7. HYDROCODONE BITARTRATE AND IBUPROFEN [Concomitant]
  8. BACTRIM [Concomitant]
  9. IBUPROFEN [Concomitant]
  10. FUZEON [Suspect]
     Route: 058
     Dates: start: 20060101

REACTIONS (3)
  - CEREBROVASCULAR ACCIDENT [None]
  - INJECTION SITE REACTION [None]
  - RASH [None]
